FAERS Safety Report 9481869 (Version 2)
Quarter: 2013Q3

REPORT INFORMATION
  Report Type: Spontaneous
  Country: US (occurrence: US)
  Receive Date: 20130828
  Receipt Date: 20130828
  Transmission Date: 20140515
  Serious: Yes (Death, Hospitalization)
  Sender: FDA-Public Use
  Company Number: US-AMGEN-KDL229214

PATIENT
  Age: 2 Year
  Sex: Female
  Weight: 11.4 kg

DRUGS (4)
  1. ENBREL [Suspect]
     Indication: JUVENILE IDIOPATHIC ARTHRITIS
     Dosage: 10 MG, QWK
     Route: 058
     Dates: start: 20060602, end: 20070324
  2. METHOTREXATE [Concomitant]
     Dosage: 7.5 MG, UNK
     Dates: start: 200606, end: 200704
  3. NAPROXEN [Concomitant]
     Dosage: UNK UNK, UNK
     Dates: start: 200605
  4. PREDNISONE [Concomitant]
     Dosage: UNK UNK, UNK
     Dates: start: 200704

REACTIONS (15)
  - Sepsis [Fatal]
  - Interstitial lung disease [Unknown]
  - Anaemia [Unknown]
  - Bronchiolitis [Unknown]
  - Subcutaneous emphysema [Unknown]
  - Pneumonia [Unknown]
  - Pneumothorax [Unknown]
  - Pleural effusion [Unknown]
  - Pulmonary haemosiderosis [Unknown]
  - Vomiting [Fatal]
  - Malaise [Fatal]
  - Oropharyngeal pain [Unknown]
  - Productive cough [Unknown]
  - Gastric dilatation [Unknown]
  - Infection [Unknown]
